FAERS Safety Report 14224134 (Version 1)
Quarter: 2017Q4

REPORT INFORMATION
  Report Type: Spontaneous
  Country: US (occurrence: None)
  Receive Date: 20171125
  Receipt Date: 20171125
  Transmission Date: 20180321
  Serious: Yes (Other)
  Sender: FDA-Public Use
  Company Number: None

PATIENT
  Age: 36 Year
  Sex: Female
  Weight: 65.77 kg

DRUGS (1)
  1. PARAGARD T 380A [Suspect]
     Active Substance: COPPER
     Dates: start: 20140331

REACTIONS (5)
  - Dysmenorrhoea [None]
  - Pain [None]
  - Presyncope [None]
  - Tinnitus [None]
  - Loss of consciousness [None]

NARRATIVE: CASE EVENT DATE: 20171124
